FAERS Safety Report 9916074 (Version 1)
Quarter: 2014Q1

REPORT INFORMATION
  Report Type: Spontaneous
  Country: DE (occurrence: DE)
  Receive Date: 20140221
  Receipt Date: 20140221
  Transmission Date: 20141002
  Serious: Yes (Other)
  Sender: FDA-Public Use
  Company Number: DE-BAYER-2014-026677

PATIENT
  Age: 44 Year
  Sex: Female

DRUGS (3)
  1. MIRENA [Suspect]
     Dosage: 20 MCG/24HR, CONT
     Route: 015
     Dates: start: 200308
  2. MIRENA [Suspect]
     Dosage: 20 MCG/24HR, CONT
     Route: 015
     Dates: end: 20130829
  3. MIRENA [Suspect]
     Dosage: 20 MCG/24HR, CONT
     Route: 015
     Dates: start: 20130829

REACTIONS (8)
  - Embedded device [None]
  - Foreign body reaction [None]
  - Uterine cervix stenosis [Recovered/Resolved]
  - Complication of device removal [Recovered/Resolved]
  - Uterine hypoplasia [None]
  - Off label use [None]
  - Device misuse [None]
  - Device dislocation [None]
